FAERS Safety Report 19220103 (Version 1)
Quarter: 2021Q2

REPORT INFORMATION
  Report Type: Spontaneous
  Country: US (occurrence: US)
  Receive Date: 20210505
  Receipt Date: 20210505
  Transmission Date: 20210717
  Serious: No
  Sender: FDA-Public Use
  Company Number: US-ELI_LILLY_AND_COMPANY-US202105000285

PATIENT
  Sex: Female

DRUGS (1)
  1. VERZENIO [Suspect]
     Active Substance: ABEMACICLIB
     Indication: GLIOBLASTOMA
     Dosage: UNK UNK, UNKNOWN
     Route: 048
     Dates: start: 202104

REACTIONS (2)
  - Off label use [Not Recovered/Not Resolved]
  - Speech disorder [Unknown]
